FAERS Safety Report 8267801-3 (Version None)
Quarter: 2012Q2

REPORT INFORMATION
  Report Type: 
  Country: None (occurrence: None)
  Receive Date: 20120409
  Receipt Date: 20120326
  Transmission Date: 20120825
  Serious: Yes (Other)
  Sender: FDA-Public Use
  Company Number: IT-CELGENEUS-083-C5013-11103169

PATIENT
  Sex: Male
  Weight: 77 kg

DRUGS (9)
  1. LENALIDOMIDE [Suspect]
     Dosage: 15 MILLIGRAM
     Route: 048
     Dates: start: 20110816, end: 20110912
  2. LEVOFLOXACIN [Concomitant]
     Dosage: 500 MILLIGRAM
     Route: 065
  3. ACYCLOVIR [Concomitant]
     Dosage: 800 MILLIGRAM
     Route: 065
  4. LANSOPRAZOLE [Concomitant]
     Dosage: 15 MILLIGRAM
     Route: 065
  5. OLMESARTAN MEDOXOMIL [Concomitant]
     Dosage: 20 MILLIGRAM
     Route: 065
  6. LAEVOLAC [Concomitant]
     Indication: CONSTIPATION
     Route: 065
  7. CALCIUM CARBONATE [Concomitant]
     Route: 065
  8. LEVOTHYROXINE SODIUM [Concomitant]
     Dosage: 100 MICROGRAM
     Route: 065
  9. LENALIDOMIDE [Suspect]
     Dosage: 15 MILLIGRAM
     Route: 048
     Dates: start: 20100330

REACTIONS (8)
  - PNEUMONIA [None]
  - BLOOD BILIRUBIN INCREASED [None]
  - SERUM FERRITIN INCREASED [None]
  - BILIRUBIN CONJUGATED INCREASED [None]
  - LIGHT CHAIN ANALYSIS INCREASED [None]
  - REFRACTORY ANAEMIA WITH AN EXCESS OF BLASTS [None]
  - WHITE BLOOD CELL COUNT DECREASED [None]
  - THROMBOCYTOPENIA [None]
